FAERS Safety Report 14573529 (Version 1)
Quarter: 2018Q1

REPORT INFORMATION
  Report Type: Report from Study
  Country: GB (occurrence: GB)
  Receive Date: 20180226
  Receipt Date: 20180226
  Transmission Date: 20180509
  Serious: Yes (Death)
  Sender: FDA-Public Use
  Company Number: GB-TEVA-2018-GB-861886

PATIENT
  Sex: Male

DRUGS (3)
  1. TRAMADOL. [Suspect]
     Active Substance: TRAMADOL
     Dosage: INGESTED EXCESSIVE AMOUNTS OF TRAMADOL
     Route: 048
  2. CITALOPRAM [Suspect]
     Active Substance: CITALOPRAM HYDROBROMIDE
     Dosage: INGESTED EXCESSIVE AMOUNTS OF CITALOPRAM
     Route: 048
  3. MIRTAZAPINE. [Suspect]
     Active Substance: MIRTAZAPINE
     Dosage: INGESTED EXCESSIVE AMOUNTS OF MIRTAZAPINE
     Route: 048

REACTIONS (2)
  - Death [Fatal]
  - Overdose [Unknown]
